FAERS Safety Report 18581988 (Version 1)
Quarter: 2020Q4

REPORT INFORMATION
  Report Type: Spontaneous
  Country: FR (occurrence: FR)
  Receive Date: 20201205
  Receipt Date: 20201205
  Transmission Date: 20210114
  Serious: Yes (Hospitalization, Other)
  Sender: FDA-Public Use
  Company Number: FR-AUROBINDO-AUR-APL-2020-020047

PATIENT
  Age: 23 Year
  Sex: Male
  Weight: 49 kg

DRUGS (31)
  1. ALANINE [Suspect]
     Active Substance: ALANINE
     Indication: PARENTERAL NUTRITION
     Dosage: UNK
     Route: 041
  2. METHYLPREDNISOLONE SODIUM SUCCINATE. [Suspect]
     Active Substance: METHYLPREDNISOLONE SODIUM SUCCINATE
     Indication: CROHN^S DISEASE
     Dosage: 100 MILLIGRAM
     Route: 042
     Dates: start: 20081222, end: 20090112
  3. SOLU-MEDROL [Suspect]
     Active Substance: METHYLPREDNISOLONE SODIUM SUCCINATE
     Indication: CROHN^S DISEASE
     Dosage: 100 MILLIGRAM
     Route: 042
     Dates: start: 20080120
  4. SOLU-MEDROL [Suspect]
     Active Substance: METHYLPREDNISOLONE SODIUM SUCCINATE
     Dosage: 100 MILLIGRAM
     Route: 042
     Dates: start: 20090120
  5. FLUCONAZOLE HARD CAPSULES [Suspect]
     Active Substance: FLUCONAZOLE
     Indication: RASH
     Dosage: 100 MILLIGRAM, ONCE A DAY
     Route: 048
     Dates: start: 20090106, end: 20090118
  6. FLUCONAZOLE HARD CAPSULES [Suspect]
     Active Substance: FLUCONAZOLE
     Dosage: 100 MILLIGRAM, ONCE A DAY
     Route: 048
     Dates: start: 20090119
  7. AERIUS (DESLORATADINE) [Suspect]
     Active Substance: DESLORATADINE
     Indication: RASH
     Dosage: 1 DOSAGE FORM, ONCE A DAY
     Route: 048
     Dates: start: 20090107
  8. METHYLPREDNISOLONE SODIUM SUCCINATE. [Suspect]
     Active Substance: METHYLPREDNISOLONE SODIUM SUCCINATE
     Indication: ABSCESS
     Dosage: 60 MILLIGRAM
     Route: 048
     Dates: start: 20080811
  9. PRIMAXIN IV [Suspect]
     Active Substance: CILASTATIN SODIUM\IMIPENEM
     Indication: ABSCESS
     Dosage: UNK
     Route: 042
     Dates: start: 20081222, end: 20090112
  10. SOLU-MEDROL [Suspect]
     Active Substance: METHYLPREDNISOLONE SODIUM SUCCINATE
     Dosage: 60 MILLIGRAM
     Route: 048
     Dates: start: 20090120
  11. STRUCTOKABIVEN [Suspect]
     Active Substance: AMINO ACIDS\DEXTROSE\ELECTROLYTES NOS
     Indication: MALNUTRITION
     Dosage: UNK
     Route: 065
  12. VANCOMYCIN HCL [Suspect]
     Active Substance: VANCOMYCIN HYDROCHLORIDE
     Dosage: 32 GRAM
     Route: 042
     Dates: start: 20081220, end: 20090112
  13. LEKOVIT CA [Suspect]
     Active Substance: CALCIUM CARBONATE\CHOLECALCIFEROL
     Indication: PRODUCT USED FOR UNKNOWN INDICATION
     Dosage: 1 DOSAGE FORM, ONCE A DAY
     Route: 048
     Dates: start: 20081227
  14. VANCOMYCIN HCL [Suspect]
     Active Substance: VANCOMYCIN HYDROCHLORIDE
     Dosage: 2 GRAM, ONCE A DAY
     Route: 042
     Dates: start: 20081222, end: 20090112
  15. CALCIUM CHOLECALCIFEROL BERES [Suspect]
     Active Substance: CALCIUM CARBONATE\CHOLECALCIFEROL
     Indication: PRODUCT USED FOR UNKNOWN INDICATION
     Dosage: UNK UNK, ONCE A DAY
     Route: 048
  16. FLUCONAZOLE HARD CAPSULES [Suspect]
     Active Substance: FLUCONAZOLE
     Dosage: 200 MILLIGRAM, ONCE A DAY
     Route: 048
     Dates: start: 20090119, end: 20090130
  17. LOVENOX [Suspect]
     Active Substance: ENOXAPARIN SODIUM
     Indication: PRODUCT USED FOR UNKNOWN INDICATION
     Dosage: 1 DOSAGE FORM, ONCE A DAY
     Route: 058
     Dates: start: 20081224
  18. SOLU-MEDROL [Suspect]
     Active Substance: METHYLPREDNISOLONE SODIUM SUCCINATE
     Dosage: 60 MILLIGRAM
     Route: 048
     Dates: start: 20080811
  19. STRUCTOKABIVEN [Suspect]
     Active Substance: AMINO ACIDS\DEXTROSE\ELECTROLYTES NOS
     Indication: PARENTERAL NUTRITION
     Dosage: 4000 MILLILITER, ONCE A DAY
     Route: 041
     Dates: start: 20081228, end: 20090207
  20. METHYLPREDNISOLONE SODIUM SUCCINATE. [Suspect]
     Active Substance: METHYLPREDNISOLONE SODIUM SUCCINATE
     Dosage: 100 MILLIGRAM
     Route: 042
     Dates: start: 20090120
  21. PEVARYL [Suspect]
     Active Substance: ECONAZOLE NITRATE
     Indication: RASH
     Dosage: 2 DOSAGE FORM
     Route: 061
     Dates: start: 20090114
  22. CACIT [CALCIUM CARBONATE;CITRIC ACID] [Suspect]
     Active Substance: CALCIUM CARBONATE\CITRIC ACID MONOHYDRATE
     Indication: PRODUCT USED FOR UNKNOWN INDICATION
     Dosage: UNK UNK, ONCE A DAY
     Route: 048
     Dates: start: 20081227
  23. DESLORATADINE FILM-COATED TABLET [Suspect]
     Active Substance: DESLORATADINE
     Indication: RASH
     Dosage: 1 DOSAGE FORM, ONCE A DAY
     Route: 048
     Dates: start: 20090107
  24. SPECIAFOLDINE [Suspect]
     Active Substance: FOLIC ACID
     Indication: PRODUCT USED FOR UNKNOWN INDICATION
     Dosage: 3 DOSAGE FORM, ONCE A DAY
     Route: 048
     Dates: start: 20081223
  25. TIENAM [Suspect]
     Active Substance: CILASTATIN SODIUM\IMIPENEM
     Indication: ABSCESS
     Dosage: UNK
     Route: 042
     Dates: start: 20081222, end: 20090112
  26. TRANXENE [Suspect]
     Active Substance: CLORAZEPATE DIPOTASSIUM
     Indication: ANXIETY
     Dosage: 1 DOSAGE FORM, ONCE A DAY
     Route: 042
     Dates: start: 20081222, end: 20090123
  27. CALCIUM CARBONATE. [Suspect]
     Active Substance: CALCIUM CARBONATE
     Indication: PRODUCT USED FOR UNKNOWN INDICATION
     Dosage: 1 DOSAGE FORM, ONCE A DAY
     Route: 048
     Dates: start: 20081227
  28. EBASTINE [Suspect]
     Active Substance: EBASTINE
     Indication: RASH
     Dosage: UNK
     Route: 048
     Dates: start: 20090107
  29. ALANINE [Suspect]
     Active Substance: ALANINE
     Indication: MALNUTRITION
     Dosage: 4000 MILLILITER, ONCE A DAY
     Route: 041
     Dates: start: 20081228, end: 20090207
  30. VANCOMYCIN HCL [Suspect]
     Active Substance: VANCOMYCIN HYDROCHLORIDE
     Indication: ABSCESS
     Dosage: 32 MILLIGRAM
     Route: 065
     Dates: start: 20081220, end: 20081220
  31. REMICADE [Suspect]
     Active Substance: INFLIXIMAB
     Indication: CROHN^S DISEASE
     Dosage: 100 MILLIGRAM
     Route: 042
     Dates: start: 20090120

REACTIONS (3)
  - Hepatitis [Recovering/Resolving]
  - Weight decreased [Unknown]
  - Fungal test positive [Unknown]

NARRATIVE: CASE EVENT DATE: 20090106
